FAERS Safety Report 17206271 (Version 1)
Quarter: 2020Q1

REPORT INFORMATION
  Report Type: Spontaneous
  Country: US (occurrence: US)
  Receive Date: 20191226
  Receipt Date: 20191226
  Transmission Date: 20200409
  Serious: Yes (Disabling)
  Sender: FDA-Public Use
  Company Number: None

PATIENT
  Age: 11 Month
  Sex: Female
  Weight: 85.5 kg

DRUGS (6)
  1. IBUPROFEN 400MG PRN [Concomitant]
  2. BUSPIRONE [Concomitant]
     Active Substance: BUSPIRONE HYDROCHLORIDE
  3. TYLENOL 650MG PRN [Concomitant]
  4. TOPIRAMATE. [Suspect]
     Active Substance: TOPIRAMATE
     Indication: TREMOR
     Dosage: ?          QUANTITY:0.5 TABLET(S);?
     Route: 048
     Dates: start: 20191126, end: 20191204
  5. HCTZ 12.5MG CAPS [Concomitant]
     Active Substance: HYDROCHLOROTHIAZIDE
  6. TOPIRAMATE. [Suspect]
     Active Substance: TOPIRAMATE
     Indication: HYPERTENSION
     Dosage: ?          QUANTITY:0.5 TABLET(S);?
     Route: 048
     Dates: start: 20191126, end: 20191204

REACTIONS (7)
  - Conjunctival oedema [None]
  - Pupillary light reflex tests abnormal [None]
  - Optic nerve injury [None]
  - Blindness unilateral [None]
  - Blood pressure increased [None]
  - Angle closure glaucoma [None]
  - Sinusitis [None]

NARRATIVE: CASE EVENT DATE: 20191204
